FAERS Safety Report 9220918 (Version 1)
Quarter: 2013Q2

REPORT INFORMATION
  Report Type: Spontaneous
  Country: IN (occurrence: IN)
  Receive Date: 20130409
  Receipt Date: 20130409
  Transmission Date: 20140414
  Serious: Yes (Other)
  Sender: FDA-Public Use
  Company Number: PHHY2013IN031960

PATIENT
  Age: 32 Year
  Sex: Female

DRUGS (2)
  1. CARBAMAZEPINE [Suspect]
     Indication: NEURALGIA
     Dosage: 100 MG, BID
     Route: 048
  2. CARBAMAZEPINE [Suspect]
     Dosage: 200 MG, TID
     Route: 048

REACTIONS (9)
  - Lung infiltration [Unknown]
  - Cyanosis [Recovering/Resolving]
  - Tachypnoea [Recovering/Resolving]
  - Hypoxia [Unknown]
  - Pyrexia [Unknown]
  - Jaundice [Recovering/Resolving]
  - Hyponatraemia [Recovered/Resolved]
  - Dyspnoea [Recovering/Resolving]
  - Hepatic function abnormal [Recovering/Resolving]
